FAERS Safety Report 24720600 (Version 2)
Quarter: 2025Q1

REPORT INFORMATION
  Report Type: Spontaneous
  Country: DE (occurrence: DE)
  Receive Date: 20241211
  Receipt Date: 20250101
  Transmission Date: 20250409
  Serious: Yes (Life-Threatening, Hospitalization)
  Sender: TEVA
  Company Number: DE-TEVA-VS-3273161

PATIENT
  Age: 45 Year
  Sex: Female

DRUGS (5)
  1. CLOPIDOGREL [Suspect]
     Active Substance: CLOPIDOGREL BISULFATE
     Indication: Antiplatelet therapy
     Route: 065
     Dates: start: 202311, end: 202312
  2. IMMUNE GLOBULIN NOS [Suspect]
     Active Substance: IMMUNE GLOBULIN NOS
     Indication: Evans syndrome
     Route: 042
     Dates: start: 202312
  3. RITUXIMAB [Suspect]
     Active Substance: RITUXIMAB
     Indication: Evans syndrome
     Route: 065
     Dates: start: 202401
  4. DEXAMETHASONE [Suspect]
     Active Substance: DEXAMETHASONE
     Indication: Evans syndrome
     Route: 065
     Dates: start: 202312
  5. ELTROMBOPAG [Suspect]
     Active Substance: ELTROMBOPAG
     Indication: Evans syndrome
     Route: 065
     Dates: start: 202401

REACTIONS (2)
  - Drug ineffective [Unknown]
  - Evans syndrome [Recovered/Resolved]

NARRATIVE: CASE EVENT DATE: 20231201
